FAERS Safety Report 5029686-8 (Version None)
Quarter: 2006Q2

REPORT INFORMATION
  Report Type: 
  Country: None (occurrence: None)
  Receive Date: 20060620
  Receipt Date: 20060612
  Transmission Date: 20061013
  Serious: Yes (Death)
  Sender: FDA-Public Use
  Company Number: JP-JNJFOC-20060301337

PATIENT
  Age: 70 Year
  Sex: Female

DRUGS (2)
  1. DUROTEP [Suspect]
     Dosage: 25UG/HR 1/2 AREA
     Route: 062
  2. DUROTEP [Suspect]
     Indication: CANCER PAIN
     Route: 062

REACTIONS (14)
  - ANOREXIA [None]
  - APPLICATION SITE PAIN [None]
  - BLOOD PRESSURE INCREASED [None]
  - CHEST DISCOMFORT [None]
  - COMA [None]
  - CONFUSIONAL STATE [None]
  - DEATH [None]
  - DEMENTIA [None]
  - EATING DISORDER [None]
  - HALLUCINATION [None]
  - HEADACHE [None]
  - HEART RATE INCREASED [None]
  - HYPERSOMNIA [None]
  - PAIN [None]
